FAERS Safety Report 8043595 (Version 2)
Quarter: 2014Q1

REPORT INFORMATION
  Report Type: Spontaneous
  Country: US (occurrence: US)
  Receive Date: 20110719
  Receipt Date: 20140211
  Transmission Date: 20141002
  Serious: Yes (Other)
  Sender: FDA-Public Use
  Company Number: US-ROCHE-694392

PATIENT
  Age: 23 Year
  Sex: Male
  Weight: 61.2 kg

DRUGS (1)
  1. ACCUTANE [Suspect]
     Indication: ACNE
     Route: 048
     Dates: start: 20001218, end: 20010507

REACTIONS (12)
  - Crohn^s disease [Unknown]
  - Colitis ulcerative [Unknown]
  - Inflammatory bowel disease [Unknown]
  - Depression [Unknown]
  - Anal fissure [Unknown]
  - Anal polyp [Unknown]
  - Irritable bowel syndrome [Unknown]
  - Dry skin [Unknown]
  - Chapped lips [Unknown]
  - Epistaxis [Unknown]
  - Night blindness [Unknown]
  - Haemorrhoids [Unknown]
